FAERS Safety Report 24295772 (Version 1)
Quarter: 2024Q3

REPORT INFORMATION
  Report Type: Spontaneous
  Country: US (occurrence: US)
  Receive Date: 20240908
  Receipt Date: 20240908
  Transmission Date: 20241016
  Serious: No
  Sender: JOHNSON AND JOHNSON
  Company Number: US-JNJFOC-20240870511

PATIENT
  Age: 77 Year
  Sex: Male

DRUGS (4)
  1. TALVEY [Suspect]
     Active Substance: TALQUETAMAB-TGVS
     Indication: Plasma cell myeloma
     Route: 065
     Dates: start: 20240815
  2. TALVEY [Suspect]
     Active Substance: TALQUETAMAB-TGVS
     Dosage: SECOND DOSE
     Route: 065
  3. TALVEY [Suspect]
     Active Substance: TALQUETAMAB-TGVS
     Dosage: THIRD DOSE
     Route: 065
  4. TALVEY [Suspect]
     Active Substance: TALQUETAMAB-TGVS
     Dosage: FOURTH DOSE
     Route: 065

REACTIONS (2)
  - Taste disorder [Unknown]
  - Fatigue [Unknown]
